FAERS Safety Report 4448085-0 (Version None)
Quarter: 2004Q3

REPORT INFORMATION
  Report Type: 
  Country: None (occurrence: None)
  Receive Date: 20040812
  Receipt Date: 20040707
  Transmission Date: 20050211
  Serious: No
  Sender: FDA-Public Use
  Company Number: USA040670924

PATIENT
  Age: 68 Year
  Sex: Male

DRUGS (3)
  1. CIALIS [Suspect]
     Dosage: 20 MG
  2. ASPIRIN [Concomitant]
  3. AUGMENTIN [Concomitant]

REACTIONS (1)
  - HEPATIC ENZYME INCREASED [None]
